FAERS Safety Report 12551391 (Version 2)
Quarter: 2017Q1

REPORT INFORMATION
  Report Type: Report from Study
  Country: US (occurrence: US)
  Receive Date: 20160713
  Receipt Date: 20170222
  Transmission Date: 20170428
  Serious: No
  Sender: FDA-Public Use
  Company Number: PHEH2016US016505

PATIENT
  Sex: Male

DRUGS (1)
  1. COSENTYX [Suspect]
     Active Substance: SECUKINUMAB
     Indication: PSORIASIS
     Dosage: 300 MG, QW (ONCE FOR FIVE WEEKS FOLLOWED BY ONCE A MONTH)
     Route: 058
     Dates: start: 20160630

REACTIONS (2)
  - Pain [Unknown]
  - Psoriasis [Recovering/Resolving]
